FAERS Safety Report 11896539 (Version 1)
Quarter: 2016Q1

REPORT INFORMATION
  Report Type: Other
  Country: US (occurrence: US)
  Receive Date: 20160107
  Receipt Date: 20160107
  Transmission Date: 20160526
  Serious: Yes (Hospitalization, Other)
  Sender: FDA-Public Use
  Company Number: US-SHIRE-US201517054

PATIENT
  Age: 8 Year
  Sex: Male
  Weight: 47.62 kg

DRUGS (5)
  1. PULMICORT TURBUHALER [Concomitant]
     Active Substance: BUDESONIDE
     Indication: PRODUCT USED FOR UNKNOWN INDICATION
     Dosage: 1 DF, OTHER (AS DIRECTED)
     Route: 055
     Dates: start: 20110603
  2. CEFUROXIME. [Concomitant]
     Active Substance: CEFUROXIME
     Indication: PRODUCT USED FOR UNKNOWN INDICATION
     Dosage: 1 DF, 3X/DAY:TID (EVERY 8 HOURS)
     Route: 042
     Dates: start: 20110701
  3. VPRIV [Suspect]
     Active Substance: VELAGLUCERASE ALFA
     Indication: GAUCHER^S DISEASE
     Dosage: 2800 IU, 1X/2WKS
     Route: 041
     Dates: start: 20101115
  4. SINGULAIR [Concomitant]
     Active Substance: MONTELUKAST SODIUM
     Indication: PRODUCT USED FOR UNKNOWN INDICATION
     Dosage: 1 DF, 1X/DAY:QD
     Route: 048
     Dates: start: 20110603
  5. CHILDRENS ZYRTEC [Concomitant]
     Active Substance: CETIRIZINE HYDROCHLORIDE
     Indication: PRODUCT USED FOR UNKNOWN INDICATION
     Dosage: 5 ML, OTHER (AS DIRECTED)
     Route: 048
     Dates: start: 20140606

REACTIONS (1)
  - Pneumonia [Unknown]

NARRATIVE: CASE EVENT DATE: 20151212
